FAERS Safety Report 15313436 (Version 1)
Quarter: 2018Q3

REPORT INFORMATION
  Report Type: Spontaneous
  Country: US (occurrence: US)
  Receive Date: 20180824
  Receipt Date: 20180824
  Transmission Date: 20181010
  Serious: No
  Sender: FDA-Public Use
  Company Number: US-009507513-1808USA009551

PATIENT
  Age: 18 Year
  Sex: Female

DRUGS (1)
  1. NEXPLANON [Suspect]
     Active Substance: ETONOGESTREL
     Indication: CONTRACEPTION
     Dosage: 68 MG, EVERY 3 YEARS
     Route: 059
     Dates: start: 20171216, end: 20180817

REACTIONS (4)
  - Alopecia [Unknown]
  - Acne [Unknown]
  - Seborrhoea [Unknown]
  - Mood altered [Unknown]

NARRATIVE: CASE EVENT DATE: 20180817
